FAERS Safety Report 20086588 (Version 5)
Quarter: 2021Q4

REPORT INFORMATION
  Report Type: Report from Study
  Country: US (occurrence: US)
  Receive Date: 20211118
  Receipt Date: 20211228
  Transmission Date: 20220303
  Serious: Yes (Hospitalization)
  Sender: FDA-Public Use
  Company Number: US-BAYER-2021A251644

PATIENT
  Age: 32 Year
  Sex: Female
  Weight: 49.433 kg

DRUGS (5)
  1. ADEMPAS [Suspect]
     Active Substance: RIOCIGUAT
     Indication: Pulmonary arterial hypertension
     Dosage: UNK
  2. ADEMPAS [Suspect]
     Active Substance: RIOCIGUAT
     Indication: Pulmonary arterial hypertension
     Dosage: 1.0 MG, TID
     Route: 048
     Dates: start: 20211111
  3. ADEMPAS [Suspect]
     Active Substance: RIOCIGUAT
     Indication: Pulmonary arterial hypertension
     Dosage: 1.5 MG, TID
     Route: 048
     Dates: start: 202111
  4. ORENITRAM [Suspect]
     Active Substance: TREPROSTINIL
     Dosage: UNK
     Dates: start: 202111
  5. VELETRI [Concomitant]
     Active Substance: EPOPROSTENOL
     Dosage: UNK
     Dates: end: 202111

REACTIONS (9)
  - Hospitalisation [None]
  - Pneumonia [None]
  - Cough [None]
  - Chest pain [None]
  - Back pain [None]
  - Hypotension [None]
  - Headache [None]
  - Nausea [Not Recovered/Not Resolved]
  - Vomiting [None]

NARRATIVE: CASE EVENT DATE: 20210101
